FAERS Safety Report 5803162-4 (Version None)
Quarter: 2008Q3

REPORT INFORMATION
  Report Type: 
  Country: None (occurrence: None)
  Receive Date: 20080708
  Receipt Date: 20080625
  Transmission Date: 20090109
  Serious: Yes (Hospitalization, Other)
  Sender: FDA-Public Use
  Company Number: MX-ELI_LILLY_AND_COMPANY-MX200801006789

PATIENT
  Age: 40 Year
  Sex: Female

DRUGS (6)
  1. CYMBALTA [Suspect]
     Indication: PANIC DISORDER
     Dosage: 60 MG, DAILY (1/D)
     Route: 048
     Dates: start: 20071101, end: 20080101
  2. CYMBALTA [Suspect]
     Dosage: 60 MG, UNKNOWN
     Route: 065
     Dates: start: 20080201
  3. PROZAC [Suspect]
     Indication: PANIC DISORDER
     Dosage: 20 MG, DAILY (1/D)
     Route: 048
     Dates: start: 20080101
  4. VITAMINS [Concomitant]
     Dosage: UNK, UNKNOWN
     Route: 065
  5. BENZODIAZEPINE DERIVATIVES [Concomitant]
     Dosage: UNK, UNKNOWN
     Route: 065
  6. RIVOTRIL [Concomitant]
     Dosage: 2.5 MG, UNKNOWN
     Route: 065
     Dates: start: 20080201

REACTIONS (2)
  - DRUG EXPOSURE DURING PREGNANCY [None]
  - SOMATOFORM DISORDER PREGNANCY [None]
